FAERS Safety Report 25364052 (Version 2)
Quarter: 2025Q2

REPORT INFORMATION
  Report Type: Spontaneous
  Country: GB (occurrence: GB)
  Receive Date: 20250527
  Receipt Date: 20250618
  Transmission Date: 20250717
  Serious: Yes (Hospitalization, Other)
  Sender: Vantive US Healthcare
  Company Number: GB-VANTIVE-2025VAN002412

PATIENT
  Age: 4 Year
  Sex: Male

DRUGS (1)
  1. CALCIUM CHLORIDE\DEXTROSE\MAGNESIUM CHLORIDE\SODIUM CHLORIDE [Suspect]
     Active Substance: CALCIUM CHLORIDE\DEXTROSE\MAGNESIUM CHLORIDE\SODIUM CHLORIDE
     Route: 033
     Dates: start: 20250308, end: 20250521

REACTIONS (5)
  - Pulmonary oedema [Recovered/Resolved]
  - Vomiting [Unknown]
  - Pyrexia [Unknown]
  - Peritoneal dialysis complication [Unknown]
  - Weight increased [Unknown]

NARRATIVE: CASE EVENT DATE: 20250519
